FAERS Safety Report 15255229 (Version 2)
Quarter: 2019Q4

REPORT INFORMATION
  Report Type: Report from Study
  Country: CN (occurrence: CN)
  Receive Date: 20180808
  Receipt Date: 20191210
  Transmission Date: 20200122
  Serious: Yes (Hospitalization)
  Sender: FDA-Public Use
  Company Number: CN-SA-2018SA150672

PATIENT
  Age: 12 Year
  Sex: Male
  Weight: 29.7 kg

DRUGS (12)
  1. VITAMIN B6 [Concomitant]
     Active Substance: PYRIDOXINE HYDROCHLORIDE
     Dosage: 100 MG, QD
     Route: 042
     Dates: start: 20180524, end: 20180524
  2. ECONAZOLE;TRIAMCINOLONE ACETONIDE [Concomitant]
     Dosage: UNK, UNK
     Route: 061
     Dates: start: 20171220, end: 20180523
  3. PLACEBO [Suspect]
     Active Substance: UNSPECIFIED INGREDIENT
     Indication: RELAPSING MULTIPLE SCLEROSIS
     Dosage: 7 MG, QD
     Route: 048
     Dates: start: 20161011
  4. DOMPERIDONE [Concomitant]
     Active Substance: DOMPERIDONE
     Dosage: 30 MG, QD
     Route: 048
     Dates: start: 20180525, end: 20180529
  5. TRIAMCINOLONE ACETONIDE ACETATE [Concomitant]
     Active Substance: TRIAMCINOLONE ACETONIDE
     Dosage: UNK UNK, UNK
     Route: 061
     Dates: start: 20171220, end: 20180523
  6. CIMETIDINE [Concomitant]
     Active Substance: CIMETIDINE
     Dosage: 0.2 G, QD
     Route: 042
     Dates: start: 20180524, end: 20180524
  7. CIMETIDINE [Concomitant]
     Active Substance: CIMETIDINE
     Dosage: 0.3 G, QD
     Route: 048
     Dates: start: 20180525, end: 20180529
  8. ECONAZOLE;TRIAMCINOLONE ACETONIDE [Concomitant]
     Dosage: UNK UNK, UNK
     Route: 061
     Dates: start: 20180523, end: 20180601
  9. BUDESONIDE. [Concomitant]
     Active Substance: BUDESONIDE
     Dosage: 0.2 G, QD
     Route: 048
     Dates: start: 20180207
  10. PREDNISONE ACETATE [Concomitant]
     Active Substance: PREDNISONE ACETATE
     Dosage: 50 MG, QD
     Route: 048
     Dates: start: 20170626
  11. PREDNISONE ACETATE [Concomitant]
     Active Substance: PREDNISONE ACETATE
     Dosage: 1055 MG, QD
     Route: 048
     Dates: start: 20170616
  12. POTASSIUM CHLORIDE. [Concomitant]
     Active Substance: POTASSIUM CHLORIDE
     Indication: PROPHYLAXIS
     Dosage: 1500 MG, QD
     Route: 048
     Dates: start: 20170616

REACTIONS (1)
  - Tonsillitis [Recovered/Resolved]

NARRATIVE: CASE EVENT DATE: 20180531
